FAERS Safety Report 4988694-3 (Version None)
Quarter: 2006Q2

REPORT INFORMATION
  Report Type: 
  Country: None (occurrence: None)
  Receive Date: 20060502
  Receipt Date: 20050831
  Transmission Date: 20061013
  Serious: Yes (Hospitalization, Other)
  Sender: FDA-Public Use
  Company Number: US-MERCK-0509USA00213

PATIENT
  Age: 50 Year
  Sex: Male
  Weight: 114 kg

DRUGS (8)
  1. VIOXX [Suspect]
     Indication: ARTHRITIS
     Route: 048
     Dates: start: 20010716
  2. METOCLOPRAMIDE [Concomitant]
     Route: 065
  3. LIPITOR [Concomitant]
     Route: 065
  4. TEGRETOL [Concomitant]
     Route: 065
  5. PLAVIX [Concomitant]
     Route: 065
  6. KLONOPIN [Concomitant]
     Route: 065
  7. SEROQUEL [Concomitant]
     Route: 065
  8. GLYBURIDE [Concomitant]
     Route: 065

REACTIONS (5)
  - BRONCHITIS [None]
  - CORONARY ARTERY DISEASE [None]
  - EMBOLISM [None]
  - FOOT FRACTURE [None]
  - MYOCARDIAL INFARCTION [None]
